FAERS Safety Report 18225373 (Version 1)
Quarter: 2020Q3

REPORT INFORMATION
  Report Type: Spontaneous
  Country: US (occurrence: US)
  Receive Date: 20200903
  Receipt Date: 20200903
  Transmission Date: 20201103
  Serious: No
  Sender: FDA-Public Use
  Company Number: US-LUPIN PHARMACEUTICALS INC.-2020-04069

PATIENT
  Age: 36 Year
  Sex: Female

DRUGS (4)
  1. FORMOTEROL [Suspect]
     Active Substance: FORMOTEROL
     Indication: ASTHMA
     Dosage: UNK UNK, BID
     Route: 055
  2. MONTELUKAST [Suspect]
     Active Substance: MONTELUKAST SODIUM
     Indication: EMPHYSEMA
     Dosage: UNK
     Route: 048
  3. BUDESONIDE. [Suspect]
     Active Substance: BUDESONIDE
     Indication: ASTHMA
     Dosage: UNK UNK, BID
     Route: 055
  4. ALBUTEROL SULFATE. [Suspect]
     Active Substance: ALBUTEROL SULFATE
     Indication: EMPHYSEMA
     Dosage: UNK
     Route: 055

REACTIONS (2)
  - Normal newborn [Unknown]
  - Exposure during pregnancy [Unknown]
